FAERS Safety Report 7355280-X (Version None)
Quarter: 2011Q1

REPORT INFORMATION
  Report Type: 
  Country: None (occurrence: None)
  Receive Date: 20110316
  Receipt Date: 20110310
  Transmission Date: 20110831
  Serious: Yes (Other)
  Sender: FDA-Public Use
  Company Number: AR-ROCHE-668832

PATIENT
  Sex: Male
  Weight: 72 kg

DRUGS (10)
  1. BI 201335 [Suspect]
     Indication: HEPATITIS C
     Route: 048
     Dates: start: 20090427, end: 20090831
  2. CIPROFLOXACIN HCL [Concomitant]
     Indication: PNEUMONIA
     Route: 048
     Dates: start: 20090825, end: 20090909
  3. LORATADINE [Concomitant]
  4. RIBAVIRIN [Suspect]
     Indication: HEPATITIS C
     Route: 048
     Dates: start: 20090427, end: 20090824
  5. LANSOPRAZOLE [Concomitant]
     Indication: PROPHYLAXIS
     Route: 048
     Dates: start: 20090827, end: 20090909
  6. BETAMETHASONE [Concomitant]
  7. DICLOFENAC [Concomitant]
     Dates: end: 20090825
  8. MEPREDNISONE [Concomitant]
     Indication: BRONCHOSPASM
     Route: 048
     Dates: start: 20090825, end: 20090830
  9. PEGINTERFERON ALFA-2A [Suspect]
     Indication: HEPATITIS C
     Dosage: STRENGTH AND TDD REPORTED 180 UG/ML. FORM: SOLUTION FOR INJECTION.
     Route: 058
     Dates: start: 20090427, end: 20090817
  10. AMOXICILLIN/CLAVULANIC ACID [Concomitant]
     Indication: PNEUMONIA
     Route: 048
     Dates: start: 20090825, end: 20090909

REACTIONS (4)
  - CATARACT [None]
  - PNEUMONIA [None]
  - BRONCHOSPASM [None]
  - RASH [None]
